FAERS Safety Report 10372637 (Version 2)
Quarter: 2014Q3

REPORT INFORMATION
  Report Type: Spontaneous
  Country: JP (occurrence: JP)
  Receive Date: 20140808
  Receipt Date: 20140808
  Transmission Date: 20150326
  Serious: Yes (Hospitalization)
  Sender: FDA-Public Use
  Company Number: JP-MYLAN-2014S1015761

PATIENT

DRUGS (1)
  1. TACROLIMUS CAPSULES 1MG [PFIZER] [Suspect]
     Active Substance: TACROLIMUS
     Indication: RHEUMATOID ARTHRITIS
     Dosage: 1 MG, QD
     Route: 048

REACTIONS (1)
  - Haemorrhoids [Recovered/Resolved]
